FAERS Safety Report 7526198-4 (Version None)
Quarter: 2011Q2

REPORT INFORMATION
  Report Type: 
  Country: None (occurrence: None)
  Receive Date: 20110606
  Receipt Date: 20101117
  Transmission Date: 20111010
  Serious: No
  Sender: FDA-Public Use
  Company Number: US-BRISTOL-MYERS SQUIBB COMPANY-15336431

PATIENT
  Age: 31 Year
  Sex: Male

DRUGS (8)
  1. ATRIPLA [Suspect]
     Dates: start: 20100903
  2. LACTIC ACID BACTERIA [Concomitant]
  3. ENSURE [Concomitant]
  4. LYRICA [Concomitant]
  5. MARIJUANA [Concomitant]
  6. DEPAKOTE [Concomitant]
  7. EPZICOM [Concomitant]
  8. SUSTIVA [Suspect]
     Dates: start: 20100101

REACTIONS (4)
  - WEIGHT DECREASED [None]
  - NAUSEA [None]
  - HEADACHE [None]
  - DRY MOUTH [None]
